FAERS Safety Report 10047303 (Version 1)
Quarter: 2014Q1

REPORT INFORMATION
  Report Type: Spontaneous
  Country: US (occurrence: US)
  Receive Date: 20140331
  Receipt Date: 20140331
  Transmission Date: 20141002
  Serious: No
  Sender: FDA-Public Use
  Company Number: US-MYLANLABS-2014S1000321

PATIENT
  Age: 52 Year
  Sex: Female
  Weight: 73.48 kg

DRUGS (4)
  1. FENTANYL TRANSDERMAL SYSTEM [Suspect]
     Indication: GASTROENTERITIS EOSINOPHILIC
     Dosage: CHANGED Q 72H
     Route: 062
     Dates: start: 201312
  2. FENTANYL TRANSDERMAL SYSTEM [Suspect]
     Indication: PAIN
     Dosage: CHANGED Q 72H
     Route: 062
     Dates: start: 201312
  3. FENTANYL TRANSDERMAL SYSTEM [Suspect]
     Indication: GASTROENTERITIS EOSINOPHILIC
     Dosage: CHANGED Q72H
     Route: 062
     Dates: start: 2012, end: 201312
  4. FENTANYL TRANSDERMAL SYSTEM [Suspect]
     Indication: PAIN
     Dosage: CHANGED Q72H
     Route: 062
     Dates: start: 2012, end: 201312

REACTIONS (4)
  - Drug effect decreased [Not Recovered/Not Resolved]
  - Breakthrough pain [Not Recovered/Not Resolved]
  - Application site erosion [Not Recovered/Not Resolved]
  - Wrong technique in drug usage process [Not Recovered/Not Resolved]
